FAERS Safety Report 18564980 (Version 4)
Quarter: 2021Q1

REPORT INFORMATION
  Report Type: Spontaneous
  Country: CN (occurrence: CN)
  Receive Date: 20201201
  Receipt Date: 20210119
  Transmission Date: 20210419
  Serious: Yes (Death, Other)
  Sender: FDA-Public Use
  Company Number: CN-PFIZER INC-2020471566

PATIENT
  Age: 65 Year
  Sex: Female
  Weight: 70 kg

DRUGS (16)
  1. SOLU?MEDROL [Suspect]
     Active Substance: METHYLPREDNISOLONE SODIUM SUCCINATE
     Dosage: 40 MG, 1X/DAY
     Route: 041
     Dates: start: 20200801, end: 20200802
  2. SOLU?MEDROL [Suspect]
     Active Substance: METHYLPREDNISOLONE SODIUM SUCCINATE
     Dosage: 80 MG, 1X/DAY
     Route: 041
     Dates: start: 20200803, end: 20200807
  3. SOLU?MEDROL [Suspect]
     Active Substance: METHYLPREDNISOLONE SODIUM SUCCINATE
     Indication: ANTIALLERGIC THERAPY
     Dosage: 120 MG, 1X/DAY
     Route: 041
     Dates: start: 20200723, end: 20200725
  4. DYNASTAT [Suspect]
     Active Substance: PARECOXIB SODIUM
     Indication: PROCTITIS
     Dosage: 40 MG, 1X/DAY
     Route: 041
     Dates: start: 20200720, end: 20200720
  5. NEXIUM I.V. [Suspect]
     Active Substance: ESOMEPRAZOLE SODIUM
     Indication: GASTRITIS
     Dosage: 40 MG, 1X/DAY
     Route: 041
     Dates: start: 20200723, end: 20200731
  6. SODIUM CHLORIDE. [Concomitant]
     Active Substance: SODIUM CHLORIDE
     Dosage: 100 ML, 1X/DAY
     Route: 041
     Dates: start: 20200720, end: 20200720
  7. SOLU?MEDROL [Suspect]
     Active Substance: METHYLPREDNISOLONE SODIUM SUCCINATE
     Dosage: 60 MG, 1X/DAY
     Route: 041
     Dates: start: 20200730, end: 20200731
  8. SODIUM CHLORIDE. [Concomitant]
     Active Substance: SODIUM CHLORIDE
     Indication: VEHICLE SOLUTION USE
     Dosage: 100 ML, 1X/DAY
     Route: 041
     Dates: start: 20200720, end: 20200720
  9. DEXAMETHASONE SODIUM PHOSPHATE. [Suspect]
     Active Substance: DEXAMETHASONE SODIUM PHOSPHATE
     Indication: ANTIALLERGIC THERAPY
     Dosage: 5 MG, 1X/DAY
     Route: 041
     Dates: start: 20200720, end: 20200722
  10. ROCEPHIN [Suspect]
     Active Substance: CEFTRIAXONE SODIUM
     Indication: PROCTITIS
     Dosage: 2 G, 1X/DAY
     Route: 041
     Dates: start: 20200720, end: 20200720
  11. XI NING [CETIRIZINE HYDROCHLORIDE] [Suspect]
     Active Substance: CETIRIZINE HYDROCHLORIDE
     Indication: ANTIALLERGIC THERAPY
     Dosage: 10 MG, 1X/DAY
     Route: 048
     Dates: start: 20200722, end: 20200803
  12. SODIUM CHLORIDE. [Concomitant]
     Active Substance: SODIUM CHLORIDE
     Dosage: 100 ML, 1X/DAY
     Route: 041
     Dates: start: 20200723, end: 20200731
  13. SODIUM CHLORIDE. [Concomitant]
     Active Substance: SODIUM CHLORIDE
     Dosage: 100 ML, 2X/DAY
     Route: 041
     Dates: start: 20200726, end: 20200727
  14. SOLU?MEDROL [Suspect]
     Active Substance: METHYLPREDNISOLONE SODIUM SUCCINATE
     Dosage: 40 MG, 2X/DAY
     Route: 041
     Dates: start: 20200726, end: 20200727
  15. SOLU?MEDROL [Suspect]
     Active Substance: METHYLPREDNISOLONE SODIUM SUCCINATE
     Dosage: 120 MG, 1X/DAY
     Route: 041
     Dates: start: 20200727, end: 20200728
  16. SODIUM CHLORIDE. [Concomitant]
     Active Substance: SODIUM CHLORIDE
     Dosage: 100 ML, 1X/DAY
     Route: 041
     Dates: start: 20200720, end: 20200725

REACTIONS (10)
  - Acute hepatic failure [Fatal]
  - Drug-induced liver injury [Fatal]
  - Gastrointestinal haemorrhage [Fatal]
  - Cytomegalovirus infection [Fatal]
  - Malnutrition [Fatal]
  - Pyrexia [Fatal]
  - Proctalgia [Fatal]
  - Melaena [Fatal]
  - Haematochezia [Fatal]
  - Hepatitis cholestatic [Fatal]

NARRATIVE: CASE EVENT DATE: 20200726
